FAERS Safety Report 4324651-8 (Version None)
Quarter: 2004Q1

REPORT INFORMATION
  Report Type: 
  Country: None (occurrence: None)
  Receive Date: 20040323
  Receipt Date: 20040310
  Transmission Date: 20041129
  Serious: No
  Sender: FDA-Public Use
  Company Number: 7620

PATIENT
  Age: 52 Year
  Sex: Female

DRUGS (6)
  1. PAMIDRONATE DISODIUM [Suspect]
     Indication: BONE LESION
     Dosage: 90 MG OTH
  2. VINCRISTINE [Concomitant]
  3. DOXORUBICIN HCL [Concomitant]
  4. DEXAMETHASONE [Concomitant]
  5. INTERFERON ALPHA [Concomitant]
  6. THALIDOMIDE [Concomitant]

REACTIONS (8)
  - BLOOD CHOLESTEROL INCREASED [None]
  - BLOOD CREATINE INCREASED [None]
  - DRUG INEFFECTIVE [None]
  - GLOMERULONEPHROPATHY [None]
  - HAEMODIALYSIS [None]
  - NEPHROTIC SYNDROME [None]
  - OEDEMA PERIPHERAL [None]
  - RENAL INTERSTITIAL FIBROSIS [None]
